FAERS Safety Report 9369974 (Version 1)
Quarter: 2013Q2

REPORT INFORMATION
  Report Type: Spontaneous
  Country: US (occurrence: US)
  Receive Date: 20130626
  Receipt Date: 20130626
  Transmission Date: 20140414
  Serious: Yes (Hospitalization)
  Sender: FDA-Public Use
  Company Number: US-BAYER-2013-078066

PATIENT
  Age: 29 Year
  Sex: Female

DRUGS (4)
  1. OCELLA [Suspect]
     Indication: POLYCYSTIC OVARIES
  2. HUMIRA [Concomitant]
     Route: 042
  3. PREDNISONE [Concomitant]
     Route: 048
  4. ALBUTEROL [Concomitant]

REACTIONS (1)
  - Pulmonary embolism [None]
